FAERS Safety Report 6155136-4 (Version None)
Quarter: 2009Q2

REPORT INFORMATION
  Report Type: 
  Country: None (occurrence: None)
  Receive Date: 20090415
  Receipt Date: 20070501
  Transmission Date: 20091009
  Serious: Yes (Hospitalization, Disabling)
  Sender: FDA-Public Use
  Company Number: US-ASTRAZENECA-2006UW07776

PATIENT
  Age: 12172 Day
  Sex: Female
  Weight: 133.8 kg

DRUGS (19)
  1. SEROQUEL [Suspect]
     Indication: BIPOLAR I DISORDER
     Dosage: 25-300 MG
     Route: 048
     Dates: start: 20001101
  2. SEROQUEL [Suspect]
     Indication: PERSONALITY DISORDER
     Dosage: 25-300 MG
     Route: 048
     Dates: start: 20001101
  3. EFFEXOR [Concomitant]
  4. LITHOBID [Concomitant]
  5. ATENOLOL [Concomitant]
  6. LEVOTHYROXINE SODIUM [Concomitant]
  7. ZANTAC [Concomitant]
  8. RISPERIDONE [Concomitant]
  9. GABAPENTIN [Concomitant]
  10. TRAZODONE HCL [Concomitant]
  11. PROTONIX [Concomitant]
  12. ZYPREXA [Concomitant]
  13. MIRTAZAPINE [Concomitant]
  14. CARBAMAZEPINE [Concomitant]
  15. LAMOTRIGINE [Concomitant]
  16. SIMVASTATIN [Concomitant]
  17. METFORMIN HCL [Concomitant]
  18. LANTUS [Concomitant]
  19. GLYBURIDE [Concomitant]

REACTIONS (19)
  - ABDOMINAL PAIN [None]
  - ABDOMINAL PAIN UPPER [None]
  - ASTIGMATISM [None]
  - BIPOLAR DISORDER [None]
  - CALCULUS URETERIC [None]
  - CARDIOVASCULAR DISORDER [None]
  - CELLULITIS [None]
  - DIABETES MELLITUS [None]
  - DIARRHOEA [None]
  - GASTROOESOPHAGEAL REFLUX DISEASE [None]
  - ILL-DEFINED DISORDER [None]
  - NAUSEA [None]
  - NEPHROLITHIASIS [None]
  - NOCTURIA [None]
  - OROPHARYNGEAL PAIN [None]
  - PAIN IN EXTREMITY [None]
  - URINARY TRACT INFECTION [None]
  - VOMITING [None]
  - VULVOVAGINAL CANDIDIASIS [None]
